FAERS Safety Report 8880618 (Version 1)
Quarter: 2012Q4

REPORT INFORMATION
  Report Type: 
  Country: US (occurrence: US)
  Receive Date: 20121101
  Receipt Date: 20121101
  Transmission Date: 20130627
  Serious: Yes (Other)
  Sender: FDA-Public Use
  Company Number: US-JNJFOC-20121014459

PATIENT
  Age: 46 Year
  Sex: Female

DRUGS (1)
  1. INFLIXIMAB, RECOMBINANT [Suspect]
     Indication: CROHN^S DISEASE
     Dosage: on maintainance therapy from past 7 years
     Route: 042

REACTIONS (3)
  - Psoriasis [Recovered/Resolved]
  - Antinuclear antibody positive [Unknown]
  - Arthralgia [Unknown]
